FAERS Safety Report 11690843 (Version 1)
Quarter: 2015Q4

REPORT INFORMATION
  Report Type: Spontaneous
  Country: IT (occurrence: IT)
  Receive Date: 20151102
  Receipt Date: 20151102
  Transmission Date: 20160304
  Serious: Yes (Other)
  Sender: FDA-Public Use
  Company Number: IT-JNJFOC-20151021563

PATIENT
  Age: 4 Year
  Sex: Female

DRUGS (1)
  1. HALDOL [Suspect]
     Active Substance: HALOPERIDOL
     Indication: ACCIDENTAL EXPOSURE TO PRODUCT BY CHILD
     Route: 048
     Dates: start: 20151026, end: 20151026

REACTIONS (4)
  - Seizure [Unknown]
  - Accidental exposure to product by child [Unknown]
  - Hyperthermia [Unknown]
  - Hypertonia [Unknown]

NARRATIVE: CASE EVENT DATE: 20151026
